FAERS Safety Report 6368772-7 (Version None)
Quarter: 2009Q3

REPORT INFORMATION
  Report Type: 
  Country: None (occurrence: None)
  Receive Date: 20090922
  Receipt Date: 20090911
  Transmission Date: 20100115
  Serious: Yes (Hospitalization)
  Sender: FDA-Public Use
  Company Number: FR-MERCK-0909FRA00032

PATIENT
  Age: 74 Year
  Sex: Male
  Weight: 44 kg

DRUGS (7)
  1. EMEND [Suspect]
     Indication: GASTRIC CANCER
     Route: 048
     Dates: start: 20090727, end: 20090808
  2. DOCETAXEL [Suspect]
     Indication: GASTRIC CANCER
     Route: 042
     Dates: start: 20090727, end: 20090804
  3. ESOMEPRAZOLE MAGNESIUM [Suspect]
     Route: 042
     Dates: start: 20090722, end: 20090727
  4. ONDANSETRON HYDROCHLORIDE [Concomitant]
     Route: 042
  5. BACLOFEN [Concomitant]
     Route: 048
  6. METHYLPREDNISOLONE [Concomitant]
     Indication: GASTRIC CANCER
     Route: 042
  7. ELECTROLYTES (UNSPECIFIED) AND DEXTROSE AND LIPIDS (UNSPECIFIED) AND A [Concomitant]
     Route: 065
     Dates: start: 20090201

REACTIONS (2)
  - CHOLESTASIS [None]
  - JAUNDICE [None]
